FAERS Safety Report 24242618 (Version 1)
Quarter: 2024Q3

REPORT INFORMATION
  Report Type: Spontaneous
  Country: CA (occurrence: CA)
  Receive Date: 20240823
  Receipt Date: 20240823
  Transmission Date: 20241016
  Serious: Yes (Other)
  Sender: BIOCRYST PHARMACEUTICALS
  Company Number: CA-BIOCRYST PHARMACEUTICALS, INC.-2024BCR00856

PATIENT
  Sex: Female

DRUGS (1)
  1. ORLADEYO [Suspect]
     Active Substance: BEROTRALSTAT HYDROCHLORIDE

REACTIONS (2)
  - Urinary retention [Unknown]
  - Malaise [Unknown]
